FAERS Safety Report 11403799 (Version 1)
Quarter: 2015Q3

REPORT INFORMATION
  Report Type: Spontaneous
  Country: EG (occurrence: EG)
  Receive Date: 20150821
  Receipt Date: 20150821
  Transmission Date: 20151125
  Serious: Yes (Death, Life-Threatening, Hospitalization)
  Sender: FDA-Public Use
  Company Number: EG-NOVOPROD-460162

PATIENT
  Age: 50 Year
  Sex: Male
  Weight: 54 kg

DRUGS (3)
  1. CONCOR [Concomitant]
     Active Substance: BISOPROLOL FUMARATE
     Indication: HYPERTENSION
     Dosage: UNK
     Route: 048
  2. MIXTARD 30 HM PENFILL [Suspect]
     Active Substance: INSULIN HUMAN
     Indication: DIABETES MELLITUS
     Dosage: 25IU/MORNING AND 30IU/NIGHT
     Route: 058
  3. NOVOMIX FLEXPEN [Suspect]
     Active Substance: INSULIN ASPART
     Indication: DIABETES MELLITUS
     Dosage: 30 UNITS / MORNING DOSE AND 40-50 UNITS / NIGHT DOSE ACCORDING TO THE DIET
     Route: 058

REACTIONS (2)
  - Hepatic cancer [Fatal]
  - Hepatitis C [Fatal]
